FAERS Safety Report 6195655-8 (Version None)
Quarter: 2009Q2

REPORT INFORMATION
  Report Type: 
  Country: None (occurrence: None)
  Receive Date: 20090519
  Receipt Date: 20090505
  Transmission Date: 20091009
  Serious: Yes (Life-Threatening)
  Sender: FDA-Public Use
  Company Number: FR-GENENTECH-278026

PATIENT
  Sex: Female

DRUGS (13)
  1. HERCEPTIN [Suspect]
     Indication: BREAST CANCER
     Dosage: UNK
     Route: 042
     Dates: start: 20081208
  2. GEMZAR [Suspect]
     Indication: BREAST CANCER
     Dosage: UNK
     Route: 042
     Dates: start: 20081208
  3. KETOPROFEN [Suspect]
     Indication: ARTHRALGIA
     Dosage: UNK
     Route: 050
     Dates: start: 20090113
  4. ALTIM [Suspect]
     Indication: ARTHRALGIA
     Dosage: UNK
     Route: 014
     Dates: start: 20090113
  5. PANCILLIN [Suspect]
     Indication: DRUG USE FOR UNKNOWN INDICATION
     Dosage: UNK
     Route: 042
     Dates: start: 20090120, end: 20090122
  6. MOTILIUM [Concomitant]
     Indication: DRUG USE FOR UNKNOWN INDICATION
  7. TRANDATE [Concomitant]
     Indication: DRUG USE FOR UNKNOWN INDICATION
  8. SOLUPRED [Concomitant]
     Indication: DRUG USE FOR UNKNOWN INDICATION
  9. DIFFU K [Concomitant]
     Indication: DRUG USE FOR UNKNOWN INDICATION
  10. KARDEGIC [Concomitant]
     Indication: DRUG USE FOR UNKNOWN INDICATION
  11. BUMEX [Concomitant]
     Indication: DRUG USE FOR UNKNOWN INDICATION
  12. SPIRONOLACTONE [Concomitant]
     Indication: DRUG USE FOR UNKNOWN INDICATION
  13. EPREX [Concomitant]
     Indication: DRUG USE FOR UNKNOWN INDICATION

REACTIONS (1)
  - ACUTE GENERALISED EXANTHEMATOUS PUSTULOSIS [None]
